FAERS Safety Report 5981568-0 (Version None)
Quarter: 2008Q4

REPORT INFORMATION
  Report Type: 
  Country: None (occurrence: None)
  Receive Date: 20081205
  Receipt Date: 20081124
  Transmission Date: 20090506
  Serious: Yes (Other)
  Sender: FDA-Public Use
  Company Number: US-CELGENEUS-163-20785-08041275

PATIENT
  Sex: Female

DRUGS (3)
  1. THALOMID [Suspect]
     Indication: MULTIPLE MYELOMA
     Route: 048
     Dates: start: 20071001
  2. THALOMID [Suspect]
     Dosage: 50-100MG
     Route: 048
     Dates: start: 20070501, end: 20071001
  3. THALOMID [Suspect]
     Dosage: 200-50MG
     Route: 048
     Dates: start: 20061101, end: 20070401

REACTIONS (1)
  - BLOOD HUMAN CHORIONIC GONADOTROPIN POSITIVE [None]
